FAERS Safety Report 23166722 (Version 2)
Quarter: 2023Q4

REPORT INFORMATION
  Report Type: Spontaneous
  Country: JP (occurrence: JP)
  Receive Date: 20231109
  Receipt Date: 20231207
  Transmission Date: 20240109
  Serious: Yes (Other)
  Sender: FDA-Public Use
  Company Number: JP-AMGEN-JPNSP2023097449

PATIENT
  Age: 13 Year
  Sex: Male

DRUGS (5)
  1. BLINCYTO [Suspect]
     Active Substance: BLINATUMOMAB
     Indication: B precursor type acute leukaemia
     Dosage: 5 MICROGRAM/SQ. METER, QD, IV DRIP INFUSION
     Route: 042
     Dates: start: 20230417, end: 20230423
  2. BLINCYTO [Suspect]
     Active Substance: BLINATUMOMAB
     Indication: Philadelphia chromosome positive
     Dosage: 25 MICROGRAM/SQ. METER, QD, IV DRIP INFUSION
     Route: 042
     Dates: start: 20230424, end: 20230514
  3. BLINCYTO [Suspect]
     Active Substance: BLINATUMOMAB
     Dosage: 25 MICROGRAM/SQ. METER, QD, IV DRIP INFUSION
     Route: 042
     Dates: start: 20230529, end: 20230625
  4. BLINCYTO [Suspect]
     Active Substance: BLINATUMOMAB
     Dosage: UNK, IV DRIP INFUSION
     Route: 042
     Dates: start: 2023, end: 2023
  5. BLINCYTO [Suspect]
     Active Substance: BLINATUMOMAB
     Dosage: UNK, IV DRIP INFUSION
     Route: 042
     Dates: start: 2023, end: 20231029

REACTIONS (5)
  - Immune effector cell-associated neurotoxicity syndrome [Recovered/Resolved]
  - Cytokine release syndrome [Recovered/Resolved]
  - Erythema [Recovered/Resolved]
  - Cough [Recovered/Resolved]
  - Viral infection [Recovered/Resolved]

NARRATIVE: CASE EVENT DATE: 20230101
